FAERS Safety Report 13987740 (Version 1)
Quarter: 2017Q3

REPORT INFORMATION
  Report Type: Spontaneous
  Country: ML (occurrence: ML)
  Receive Date: 20170919
  Receipt Date: 20170919
  Transmission Date: 20171128
  Serious: Yes (Life-Threatening, Hospitalization)
  Sender: FDA-Public Use
  Company Number: PHHY2017ML137573

PATIENT
  Age: 36 Year
  Sex: Male

DRUGS (1)
  1. CURAM [Suspect]
     Active Substance: AMOXICILLIN\CLAVULANATE POTASSIUM
     Indication: WOUND
     Dosage: 1000 MG, BID
     Route: 048
     Dates: start: 20170913

REACTIONS (3)
  - Dermatitis allergic [Recovered/Resolved]
  - Dyspnoea [Recovered/Resolved]
  - Contraindicated product administered [Unknown]

NARRATIVE: CASE EVENT DATE: 20170913
